FAERS Safety Report 4899613-2 (Version None)
Quarter: 2006Q1

REPORT INFORMATION
  Report Type: 
  Country: None (occurrence: None)
  Receive Date: 20060118
  Receipt Date: 20050808
  Transmission Date: 20060701
  Serious: No
  Sender: FDA-Public Use
  Company Number: 2005001560

PATIENT
  Age: 67 Year
  Sex: Female

DRUGS (2)
  1. TARCEVA [Suspect]
     Indication: NON-SMALL CELL LUNG CANCER
     Dosage: 150 MG (QD), ORAL
     Route: 048
  2. ABILIFY [Concomitant]

REACTIONS (11)
  - ALOPECIA [None]
  - CHEILITIS [None]
  - DRUG INTERACTION [None]
  - DRY SKIN [None]
  - EPISTAXIS [None]
  - EYE INFLAMMATION [None]
  - EYE IRRITATION [None]
  - LACRIMATION INCREASED [None]
  - RASH [None]
  - RHINORRHOEA [None]
  - SKIN FISSURES [None]
